FAERS Safety Report 14381887 (Version 2)
Quarter: 2018Q1

REPORT INFORMATION
  Report Type: Spontaneous
  Country: BR (occurrence: BR)
  Receive Date: 20180112
  Receipt Date: 20180112
  Transmission Date: 20180509
  Serious: Yes (Other)
  Sender: FDA-Public Use
  Company Number: BR-BAYER-2014-018369

PATIENT
  Age: 34 Year
  Sex: Female

DRUGS (2)
  1. QLAIRA [Suspect]
     Active Substance: DIENOGEST\ESTRADIOL VALERATE
     Indication: CONTRACEPTION
     Dosage: 1 DF, QD
     Route: 048
     Dates: start: 2012, end: 201401
  2. QLAIRA [Suspect]
     Active Substance: DIENOGEST\ESTRADIOL VALERATE
     Indication: ABDOMINAL PAIN LOWER

REACTIONS (5)
  - Pregnancy on oral contraceptive [Recovered/Resolved]
  - Menstruation delayed [Recovered/Resolved]
  - General physical health deterioration [Not Recovered/Not Resolved]
  - Haemorrhage in pregnancy [None]
  - Drug ineffective [None]

NARRATIVE: CASE EVENT DATE: 201311
